FAERS Safety Report 7938167-0 (Version None)
Quarter: 2011Q4

REPORT INFORMATION
  Report Type: 
  Country: None (occurrence: None)
  Receive Date: 20111123
  Receipt Date: 20111011
  Transmission Date: 20120403
  Serious: No
  Sender: FDA-Public Use
  Company Number: US-BRISTOL-MYERS SQUIBB COMPANY-16153488

PATIENT
  Age: 59 Year
  Sex: Male

DRUGS (2)
  1. ONGLYZA [Suspect]
     Dosage: ONGLYZA 2.5MG AND 3 MONTHS  THEN ONGLYZA 5MG 3MONTHS
  2. ACTOS [Suspect]

REACTIONS (1)
  - GLYCOSYLATED HAEMOGLOBIN INCREASED [None]
